FAERS Safety Report 12725651 (Version 1)
Quarter: 2016Q3

REPORT INFORMATION
  Report Type: Spontaneous
  Country: US (occurrence: US)
  Receive Date: 20160906
  Receipt Date: 20160906
  Transmission Date: 20161109
  Serious: Yes (Death)
  Sender: FDA-Public Use
  Company Number: None

PATIENT
  Age: 40 Year
  Sex: Female
  Weight: 75.6 kg

DRUGS (1)
  1. ALTEPLASE [Suspect]
     Active Substance: ALTEPLASE
     Indication: ISCHAEMIC STROKE
     Dosage: OTHER STRENGTH:;OTHER DOSE:;OTHER FREQUENCY:ONCE;OTHER ROUTE:
     Route: 040

REACTIONS (7)
  - Nausea [None]
  - Unresponsive to stimuli [None]
  - Brain death [None]
  - Vomiting [None]
  - Cerebral haemorrhage [None]
  - Brain midline shift [None]
  - Haemorrhagic transformation stroke [None]

NARRATIVE: CASE EVENT DATE: 20160831
